FAERS Safety Report 6373836-8 (Version None)
Quarter: 2009Q3

REPORT INFORMATION
  Report Type: 
  Country: None (occurrence: None)
  Receive Date: 20090924
  Receipt Date: 20090609
  Transmission Date: 20100115
  Serious: No
  Sender: FDA-Public Use
  Company Number: US-ASTRAZENECA-2009UW14829

PATIENT
  Age: 63 Year
  Sex: Female
  Weight: 71.7 kg

DRUGS (12)
  1. SEROQUEL [Suspect]
     Indication: BIPOLAR DISORDER
     Route: 048
     Dates: start: 20090201
  2. SEROQUEL [Suspect]
     Route: 048
     Dates: start: 20090501
  3. SEROQUEL [Suspect]
     Route: 048
     Dates: start: 20090101
  4. PRILOSED DELAYED RELEASE CAPSULES [Concomitant]
     Indication: DYSPEPSIA
     Route: 048
  5. LISINOPRIL [Concomitant]
     Route: 048
  6. ALBUTEROL [Concomitant]
  7. METFORMIN HCL [Concomitant]
  8. LUMIGAN [Concomitant]
  9. ADVAIR HFA [Concomitant]
  10. CITALOPRAM [Concomitant]
  11. LEVOTHYROXINE SODIUM [Concomitant]
  12. GABAPENTIN [Concomitant]

REACTIONS (3)
  - ANGER [None]
  - DEPRESSION [None]
  - WRONG DRUG ADMINISTERED [None]
